FAERS Safety Report 9662506 (Version 2)
Quarter: 2013Q4

REPORT INFORMATION
  Report Type: Spontaneous
  Country: US (occurrence: US)
  Receive Date: 20131031
  Receipt Date: 20131031
  Transmission Date: 20140711
  Serious: Yes (Other)
  Sender: FDA-Public Use
  Company Number: US-NAPPMUNDI-USA-2011-0067085

PATIENT
  Sex: Female
  Weight: 90.25 kg

DRUGS (2)
  1. OXYCODONE HYDROCHLORIDE (SIMILAR TO NDA 22-272) [Suspect]
     Indication: PAIN
     Dosage: 20 MG, TID
     Route: 048
     Dates: start: 20100226, end: 20110301
  2. PERCOCET /00446701/ [Suspect]
     Indication: PAIN
     Dosage: 1 TABLET, BID PRN
     Route: 048
     Dates: start: 20100808, end: 20110301

REACTIONS (1)
  - Drug abuse [Unknown]
